FAERS Safety Report 9434460 (Version 1)
Quarter: 2013Q3

REPORT INFORMATION
  Report Type: Spontaneous
  Country: US (occurrence: None)
  Receive Date: 20130731
  Receipt Date: 20130731
  Transmission Date: 20140515
  Serious: Yes (Hospitalization)
  Sender: FDA-Public Use
  Company Number: None

PATIENT
  Age: 81 Year
  Sex: Male
  Weight: 67.1 kg

DRUGS (4)
  1. ABRAXANE [Suspect]
     Indication: PANCREATIC CARCINOMA METASTATIC
     Dosage: ABRAXANE 100MG/M2 Q14DAYS IV
     Route: 042
     Dates: start: 20130212, end: 20130701
  2. OXALIPLATIN [Suspect]
     Indication: PANCREATIC CARCINOMA METASTATIC
     Dosage: OXALIPLATIN85MG/2 Q14DAYS IV
     Route: 042
     Dates: start: 20130212, end: 20130701
  3. LEUCOVORIN [Suspect]
     Dosage: LEUCO 400MGM/2 Q14DAYS IV
     Route: 042
     Dates: start: 20130212, end: 20130701
  4. 5FU [Suspect]
     Dosage: 5FU 1200MG/M2 X 2DAYS CIV 46HRS?
     Dates: start: 20130212, end: 20130701

REACTIONS (2)
  - Sepsis [None]
  - Atelectasis [None]
